FAERS Safety Report 6966344-4 (Version None)
Quarter: 2010Q3

REPORT INFORMATION
  Report Type: 
  Country: None (occurrence: None)
  Receive Date: 20100903
  Receipt Date: 20100830
  Transmission Date: 20110219
  Serious: Yes (Hospitalization)
  Sender: FDA-Public Use
  Company Number: FR-ROCHE-724569

PATIENT
  Sex: Female
  Weight: 48 kg

DRUGS (9)
  1. RIBAVIRIN [Suspect]
     Dosage: FREQUENCY: NOT PROVIDED
     Route: 048
     Dates: start: 20091015
  2. RIBAVIRIN [Suspect]
     Dosage: DOSAGE REDUCED.
     Route: 048
  3. RIBAVIRIN [Suspect]
     Dosage: FREQUENCY: NOT PROVIDED
     Route: 048
  4. PEGINTERFERON ALFA-2A [Concomitant]
     Dosage: 1 INJECTION PER WEEK.
     Route: 058
     Dates: start: 20091014
  5. FENOFIBRATE [Concomitant]
     Route: 048
  6. NOCTRAN [Concomitant]
  7. ACETAMINOPHEN [Concomitant]
     Dates: start: 20091014
  8. TAHOR [Concomitant]
  9. ATARAX [Concomitant]

REACTIONS (1)
  - GENERAL PHYSICAL HEALTH DETERIORATION [None]
